FAERS Safety Report 4465377-X (Version None)
Quarter: 2004Q4

REPORT INFORMATION
  Report Type: 
  Country: None (occurrence: None)
  Receive Date: 20041004
  Receipt Date: 20040621
  Transmission Date: 20050328
  Serious: Yes (Other)
  Sender: FDA-Public Use
  Company Number: US-ROCHE-371744

PATIENT
  Age: 29 Year
  Sex: Female

DRUGS (2)
  1. KLONOPIN [Suspect]
     Indication: DRUG USE FOR UNKNOWN INDICATION
     Dosage: FORMULATION REPORTED AS WAFER.
     Route: 048
  2. KLONOPIN [Concomitant]
     Route: 048

REACTIONS (3)
  - ORAL MUCOSAL BLISTERING [None]
  - PHARYNGEAL ERYTHEMA [None]
  - SWELLING FACE [None]
